FAERS Safety Report 5131678-5 (Version None)
Quarter: 2006Q4

REPORT INFORMATION
  Report Type: 
  Country: None (occurrence: None)
  Receive Date: 20061016
  Receipt Date: 20061004
  Transmission Date: 20070319
  Serious: Yes (Hospitalization, Disabling, Other)
  Sender: FDA-Public Use
  Company Number: 2006085719

PATIENT
  Age: 64 Year
  Sex: Male
  Weight: 85 kg

DRUGS (6)
  1. ALFADIL (DOXAZOSIN) [Suspect]
     Indication: HYPERTENSION
     Dosage: 4 MG (4 MG, DAILY), ORAL
     Route: 048
     Dates: start: 20060508, end: 20060625
  2. EMCONCOR (BISOPROLOL) [Concomitant]
  3. ASPIRIN [Concomitant]
  4. SALURES (BENDROFLUMETHIAZIDE) [Concomitant]
  5. LINATIL (ENALAPRIL MALEATE) [Concomitant]
  6. PLENDIL [Concomitant]

REACTIONS (3)
  - CEREBRAL THROMBOSIS [None]
  - CEREBROVASCULAR ACCIDENT [None]
  - FALL [None]
